FAERS Safety Report 10676958 (Version 2)
Quarter: 2014Q4

REPORT INFORMATION
  Report Type: Spontaneous
  Country: AR (occurrence: AR)
  Receive Date: 20141226
  Receipt Date: 20141231
  Transmission Date: 20150529
  Serious: Yes (Other)
  Sender: FDA-Public Use
  Company Number: AR-SA-2014SA176146

PATIENT
  Age: 57 Year
  Sex: Female

DRUGS (5)
  1. VENLAFAXINE [Concomitant]
     Active Substance: VENLAFAXINE HYDROCHLORIDE
     Dosage: ONLY TAKEN 1 DOSE UP TO THE MOMENT
  2. PREGABALIN. [Concomitant]
     Active Substance: PREGABALIN
  3. CLONAZEPAM. [Suspect]
     Active Substance: CLONAZEPAM
     Indication: MENTAL DISORDER
     Route: 065
  4. CEREZYME [Suspect]
     Active Substance: IMIGLUCERASE
     Indication: GAUCHER^S DISEASE
     Dosage: 8 VIALS PER INFUSION
     Route: 042
     Dates: start: 20140306
  5. MIGRAL [Concomitant]
     Active Substance: CAFFEINE\CYCLIZINE HYDROCHLORIDE\ERGOTAMINE TARTRATE

REACTIONS (5)
  - Back pain [Unknown]
  - Gait disturbance [Unknown]
  - Arthralgia [Recovering/Resolving]
  - Groin pain [Unknown]
  - Hepatitis toxic [Recovering/Resolving]

NARRATIVE: CASE EVENT DATE: 201412
